FAERS Safety Report 8422987 (Version 3)
Quarter: 2013Q2

REPORT INFORMATION
  Report Type: Spontaneous
  Country: DE (occurrence: DE)
  Receive Date: 20120223
  Receipt Date: 20130507
  Transmission Date: 20140414
  Serious: Yes (Life-Threatening, Hospitalization, Disabling, Other)
  Sender: FDA-Public Use
  Company Number: DE-ALEXION-A201200255

PATIENT
  Age: 10 Month
  Sex: Male
  Weight: 13.3 kg

DRUGS (23)
  1. SOLIRIS 300MG [Suspect]
     Indication: HAEMOLYTIC URAEMIC SYNDROME
     Dosage: 600 MG, QW
     Route: 042
     Dates: start: 20111115, end: 20111122
  2. SOLIRIS 300MG [Suspect]
     Dosage: 600 MG, SINGLE
     Route: 042
     Dates: start: 20120127, end: 20120127
  3. SOLIRIS 300MG [Suspect]
     Dosage: 300 MG, Q2W
     Route: 042
     Dates: start: 20120203, end: 20120302
  4. SOLIRIS 300MG [Suspect]
     Dosage: 300 MG, QW
     Route: 042
     Dates: start: 20120302, end: 20130313
  5. SOLIRIS 300MG [Suspect]
     Dosage: 600 MG, Q2W
     Route: 042
     Dates: start: 20120313, end: 20130325
  6. SOLIRIS 300MG [Suspect]
     Dosage: 600 MG, QW
     Route: 042
     Dates: start: 20130325
  7. VARITECT [Concomitant]
     Indication: EXPOSURE TO COMMUNICABLE DISEASE
     Dosage: 25 IE/KG 1 HOUR INFUSION
     Route: 042
     Dates: start: 20120203, end: 20120203
  8. FERRLECIT [Concomitant]
     Indication: ANAEMIA
     Dosage: 30 MG, UNK
     Route: 042
     Dates: start: 20120124, end: 20120203
  9. ERYTHROPOIETIN [Concomitant]
     Indication: ANAEMIA
     Dosage: 2000 IE
     Route: 042
     Dates: start: 20120124, end: 20120203
  10. LEVETIRACETAM [Concomitant]
     Indication: CONVULSION
     Dosage: 150 MG, BID
     Route: 048
     Dates: start: 20111202
  11. LEVETIRACETAM [Concomitant]
     Dosage: 250 MG, BID
  12. NIFEDIPINE [Concomitant]
     Indication: HYPERTENSION
     Dosage: 6X8MG
     Route: 048
     Dates: start: 20111201
  13. METOPROLOL [Concomitant]
     Indication: HYPERTENSION
     Dosage: 23.75 MG, QD
     Route: 048
     Dates: start: 20111201
  14. LOSARTAN [Concomitant]
     Indication: HYPERTENSION
     Dosage: 5 MG, BID
     Route: 048
     Dates: start: 20111201
  15. LOSARTAN [Concomitant]
     Dosage: 12.5 MG, QD
     Dates: end: 20130313
  16. RAMIPRIL [Concomitant]
     Indication: HYPERTENSION
     Dosage: 1.25 MG, QD
     Route: 048
     Dates: start: 20111201, end: 20130313
  17. RAMIPRIL [Concomitant]
     Dosage: 2.5 MG, QD
     Dates: start: 20130325
  18. VITAMIN D [Concomitant]
     Dosage: 500 IE
     Route: 048
     Dates: start: 20101217
  19. SODIUM BICARBONATE [Concomitant]
     Dosage: 3X10ML
     Dates: start: 20120101
  20. SODIUM BICARBONATE [Concomitant]
     Dosage: 3 DF, 3X4 ML
  21. DARBEPOETIN ALFA [Concomitant]
     Dosage: UNK, Q2W
  22. PIPERACILLIN W/TAZOBACTAM [Concomitant]
     Dosage: UNK
     Route: 042
     Dates: start: 20130323, end: 20130327
  23. AMLODIPINE [Concomitant]
     Dosage: 2.5 MG, QD

REACTIONS (11)
  - Cardiac arrest [Recovering/Resolving]
  - Convulsion [Unknown]
  - Blood pressure increased [Recovering/Resolving]
  - Pancreatitis [Not Recovered/Not Resolved]
  - Grand mal convulsion [Not Recovered/Not Resolved]
  - Thrombotic microangiopathy [Unknown]
  - Malignant hypertension [Not Recovered/Not Resolved]
  - Exposure to communicable disease [Recovering/Resolving]
  - Drug ineffective [Not Recovered/Not Resolved]
  - Condition aggravated [Unknown]
  - Intentional drug misuse [Not Recovered/Not Resolved]
